FAERS Safety Report 17780842 (Version 3)
Quarter: 2021Q1

REPORT INFORMATION
  Report Type: Spontaneous
  Country: RU (occurrence: RU)
  Receive Date: 20200513
  Receipt Date: 20210128
  Transmission Date: 20210419
  Serious: Yes (Hospitalization)
  Sender: FDA-Public Use
  Company Number: NVSC2020RU127760

PATIENT
  Age: 45 Year
  Sex: Male

DRUGS (1)
  1. CYCLOSPORINE. [Suspect]
     Active Substance: CYCLOSPORINE
     Indication: ANKYLOSING SPONDYLITIS
     Dosage: 200 MG, QD
     Route: 065
     Dates: start: 201801

REACTIONS (1)
  - Pain [Unknown]

NARRATIVE: CASE EVENT DATE: 201903
